FAERS Safety Report 5765096-3 (Version None)
Quarter: 2008Q2

REPORT INFORMATION
  Report Type: 
  Country: None (occurrence: None)
  Receive Date: 20080606
  Receipt Date: 20080606
  Transmission Date: 20081010
  Serious: Yes (Disabling)
  Sender: FDA-Public Use
  Company Number: None

PATIENT
  Age: 42 Year
  Sex: Female
  Weight: 66.6788 kg

DRUGS (18)
  1. TAXOTERE [Suspect]
     Indication: BREAST CANCER
     Dosage: 136MG Q3W IV
     Route: 042
     Dates: start: 20050202
  2. TAXOTERE [Suspect]
     Indication: OESTROGEN RECEPTOR ASSAY POSITIVE
     Dosage: 136MG Q3W IV
     Route: 042
     Dates: start: 20050202
  3. TAXOTERE [Suspect]
     Indication: PROGESTERONE RECEPTOR ASSAY POSITIVE
     Dosage: 136MG Q3W IV
     Route: 042
     Dates: start: 20050202
  4. TAXOTERE [Suspect]
     Indication: BREAST CANCER
     Dosage: 136MG Q3W IV
     Route: 042
     Dates: start: 20050223
  5. TAXOTERE [Suspect]
     Indication: OESTROGEN RECEPTOR ASSAY POSITIVE
     Dosage: 136MG Q3W IV
     Route: 042
     Dates: start: 20050223
  6. TAXOTERE [Suspect]
     Indication: PROGESTERONE RECEPTOR ASSAY POSITIVE
     Dosage: 136MG Q3W IV
     Route: 042
     Dates: start: 20050223
  7. TAXOTERE [Suspect]
     Indication: BREAST CANCER
     Dosage: 136MG Q3W IV
     Route: 042
     Dates: start: 20050316
  8. TAXOTERE [Suspect]
     Indication: OESTROGEN RECEPTOR ASSAY POSITIVE
     Dosage: 136MG Q3W IV
     Route: 042
     Dates: start: 20050316
  9. TAXOTERE [Suspect]
     Indication: PROGESTERONE RECEPTOR ASSAY POSITIVE
     Dosage: 136MG Q3W IV
     Route: 042
     Dates: start: 20050316
  10. TAXOTERE [Suspect]
     Indication: BREAST CANCER
     Dosage: 136MG Q3W IV
     Route: 042
     Dates: start: 20050406
  11. TAXOTERE [Suspect]
     Indication: OESTROGEN RECEPTOR ASSAY POSITIVE
     Dosage: 136MG Q3W IV
     Route: 042
     Dates: start: 20050406
  12. TAXOTERE [Suspect]
     Indication: PROGESTERONE RECEPTOR ASSAY POSITIVE
     Dosage: 136MG Q3W IV
     Route: 042
     Dates: start: 20050406
  13. TAXOTERE [Suspect]
     Indication: BREAST CANCER
     Dosage: 136MG Q3W IV
     Route: 042
     Dates: start: 20050427
  14. TAXOTERE [Suspect]
     Indication: OESTROGEN RECEPTOR ASSAY POSITIVE
     Dosage: 136MG Q3W IV
     Route: 042
     Dates: start: 20050427
  15. TAXOTERE [Suspect]
     Indication: PROGESTERONE RECEPTOR ASSAY POSITIVE
     Dosage: 136MG Q3W IV
     Route: 042
     Dates: start: 20050427
  16. TAXOTERE [Suspect]
     Indication: BREAST CANCER
     Dosage: 136MG Q3W IV
     Route: 042
     Dates: start: 20050518
  17. TAXOTERE [Suspect]
     Indication: OESTROGEN RECEPTOR ASSAY POSITIVE
     Dosage: 136MG Q3W IV
     Route: 042
     Dates: start: 20050518
  18. TAXOTERE [Suspect]
     Indication: PROGESTERONE RECEPTOR ASSAY POSITIVE
     Dosage: 136MG Q3W IV
     Route: 042
     Dates: start: 20050518

REACTIONS (1)
  - ALOPECIA [None]
